FAERS Safety Report 17825818 (Version 2)
Quarter: 2020Q2

REPORT INFORMATION
  Report Type: Spontaneous
  Country: CN (occurrence: CN)
  Receive Date: 20200526
  Receipt Date: 20200528
  Transmission Date: 20200714
  Serious: Yes (Other)
  Sender: FDA-Public Use
  Company Number: CN-PFIZER INC-2020205174

PATIENT
  Age: 58 Year
  Sex: Male
  Weight: 85 kg

DRUGS (7)
  1. LIPITOR [Suspect]
     Active Substance: ATORVASTATIN CALCIUM
     Indication: CEREBROVASCULAR ACCIDENT
     Dosage: 20 MG, 1X/DAY
     Route: 048
     Dates: start: 20200515, end: 20200515
  2. SHENXIONG PUTAOTANG ZHUSHEYE [Suspect]
     Active Substance: HERBALS\LIGUSTRAZINE HYDROCHLORIDE
     Indication: CEREBROVASCULAR ACCIDENT
     Dosage: 200 ML, 1X/DAY
     Route: 041
     Dates: start: 20200515, end: 20200515
  3. SODIUM CHLORIDE. [Concomitant]
     Active Substance: SODIUM CHLORIDE
     Indication: CEREBROVASCULAR ACCIDENT
     Dosage: 10 ML, 1X/DAY
     Route: 042
     Dates: start: 20200515, end: 20200515
  4. BAYASPIRIN [Concomitant]
     Active Substance: ASPIRIN
     Indication: CEREBROVASCULAR ACCIDENT
     Dosage: 100 MG, 1X/DAY
     Route: 048
     Dates: start: 20200515, end: 20200515
  5. PLAVIX [Concomitant]
     Active Substance: CLOPIDOGREL BISULFATE
     Indication: CEREBROVASCULAR ACCIDENT
     Dosage: 75 MG, 1X/DAY
     Route: 048
     Dates: start: 20200515, end: 20200515
  6. KAI SHI [Concomitant]
     Active Substance: ALPROSTADIL
     Indication: CEREBROVASCULAR ACCIDENT
     Dosage: 10 UG, 1X/DAY
     Route: 042
     Dates: start: 20200515, end: 20200515
  7. RABEPRAZOLE SODIUM. [Suspect]
     Active Substance: RABEPRAZOLE SODIUM
     Indication: CEREBROVASCULAR ACCIDENT
     Dosage: 10 MG, 1X/DAY
     Route: 048
     Dates: start: 20200515, end: 20200515

REACTIONS (2)
  - Rash [Recovering/Resolving]
  - Pruritus [Recovering/Resolving]

NARRATIVE: CASE EVENT DATE: 20200515
